FAERS Safety Report 21596814 (Version 2)
Quarter: 2022Q4

REPORT INFORMATION
  Report Type: Report from Study
  Country: US (occurrence: US)
  Receive Date: 20221115
  Receipt Date: 20221117
  Transmission Date: 20230112
  Serious: Yes (Hospitalization)
  Sender: FDA-Public Use
  Company Number: US-ABBVIE-4186478

PATIENT
  Sex: Female

DRUGS (1)
  1. HUMIRA [Suspect]
     Active Substance: ADALIMUMAB
     Indication: Hidradenitis
     Dosage: CITRATE FREE
     Route: 058
     Dates: end: 20221105

REACTIONS (6)
  - Pneumonia [Recovering/Resolving]
  - Respiratory syncytial virus infection [Recovering/Resolving]
  - Pulmonary sepsis [Unknown]
  - Nasopharyngitis [Not Recovered/Not Resolved]
  - Disorientation [Unknown]
  - Seasonal allergy [Unknown]
